FAERS Safety Report 6716178-0 (Version None)
Quarter: 2010Q2

REPORT INFORMATION
  Report Type: 
  Country: None (occurrence: None)
  Receive Date: 20100507
  Receipt Date: 20100428
  Transmission Date: 20101027
  Serious: Yes (Hospitalization, Other)
  Sender: FDA-Public Use
  Company Number: US-PFIZER INC-2009296442

PATIENT
  Sex: Female
  Weight: 90.249 kg

DRUGS (36)
  1. IBUPROFEN [Suspect]
     Indication: OSTEOARTHRITIS
     Dosage: HIGH DOSE
     Route: 048
     Dates: start: 20081023, end: 20090929
  2. NAPROXEN [Suspect]
     Indication: OSTEOARTHRITIS
     Dosage: HIGH DOSE
     Route: 048
     Dates: start: 20081023, end: 20090929
  3. BLINDED *NO SUBJECT DRUG [Suspect]
     Indication: OSTEOARTHRITIS
     Dosage: HIGH DOSE
     Route: 048
     Dates: start: 20081023, end: 20090929
  4. BLINDED *PLACEBO [Suspect]
     Indication: OSTEOARTHRITIS
     Dosage: HIGH DOSE
     Route: 048
     Dates: start: 20081023, end: 20090929
  5. BLINDED CELECOXIB [Suspect]
     Indication: OSTEOARTHRITIS
     Dosage: HIGH DOSE
     Route: 048
     Dates: start: 20081023, end: 20090929
  6. IBUPROFEN [Suspect]
     Dosage: HIGH DOSE
     Route: 048
     Dates: start: 20081023, end: 20090929
  7. NAPROXEN [Suspect]
     Dosage: HIGH DOSE
     Route: 048
     Dates: start: 20081023, end: 20090929
  8. IBUPROFEN [Suspect]
     Indication: RHEUMATOID ARTHRITIS
  9. NAPROXEN [Suspect]
     Indication: RHEUMATOID ARTHRITIS
  10. BLINDED *NO SUBJECT DRUG [Suspect]
     Indication: RHEUMATOID ARTHRITIS
  11. BLINDED *PLACEBO [Suspect]
     Indication: RHEUMATOID ARTHRITIS
  12. BLINDED CELECOXIB [Suspect]
     Indication: RHEUMATOID ARTHRITIS
  13. IBUPROFEN [Suspect]
  14. NAPROXEN [Suspect]
  15. SOLU-MEDROL [Suspect]
     Indication: RENAL FAILURE ACUTE
     Dosage: UNK
     Route: 042
     Dates: start: 20091008, end: 20091016
  16. NEXIUM [Concomitant]
     Dosage: 40 MG, 1X/DAY
  17. LEVOXYL [Concomitant]
     Dosage: 125 MCG, EVERY AM
     Route: 048
     Dates: start: 20050101
  18. BISOPROLOL FUMARATE AND HYDROCHLOROTHIAZIDE [Concomitant]
     Dosage: 2.5/6.25 MG, EVERY AM
     Route: 048
     Dates: start: 20000101, end: 20091020
  19. LIPITOR [Concomitant]
     Dosage: 10 MG, EVERY PM
     Route: 048
     Dates: start: 19980101
  20. MULTI-VITAMINS [Concomitant]
     Dosage: ONE TABLET ORAL EVERY AM
     Route: 048
     Dates: start: 19900101
  21. CALCIUM MAGNESIUM ZINC [Concomitant]
     Dosage: ONE TABLET ORAL EVERY AM
     Route: 048
  22. TYLENOL ALLERGY SINUS [Concomitant]
     Dosage: ONE TABLET DAILY AS NEEDED
     Route: 048
  23. TYLENOL (CAPLET) [Concomitant]
     Dosage: TWO TABLETS FOUR TIMES A DAY AS NEEDED
     Route: 048
  24. PSEUDOEPHEDRINE HCL W/GUAIFENESIN [Concomitant]
     Dosage: ONE TABLET DAILY AS NEEDED
     Route: 048
  25. QVAR 40 [Concomitant]
     Dosage: UNK
     Route: 055
  26. SALBUTAMOL SULFATE [Concomitant]
     Dosage: TWO PUFFS EVERY 4 HOURS AS NEEDED
     Route: 055
  27. CHONDROITIN/GLUCOSAMINE [Concomitant]
     Dosage: TWO TABLETS ORAL EVERY AM
     Route: 048
  28. MAGIC MOUTHWASH [Concomitant]
     Dosage: TWICE A DAY ON A PRN BASIS
  29. CHONDROITIN/GLUCOSAMINE [Concomitant]
     Dosage: UNK
     Dates: start: 20000101
  30. MAGNESIUM [Concomitant]
     Dosage: UNK
     Dates: start: 20000101
  31. ZINC [Concomitant]
     Dosage: UNK
     Dates: start: 20000101
  32. ARTIFICIAL TEARS [Concomitant]
     Dosage: UNK
     Route: 061
     Dates: start: 20030101
  33. CALCIUM WITH VITAMIN D [Concomitant]
     Dosage: UNK
     Route: 048
     Dates: start: 20000101
  34. TYLENOL-500 [Concomitant]
     Dosage: UNK
     Route: 048
     Dates: start: 20090225, end: 20091016
  35. AMOXICILLIN [Concomitant]
     Dosage: UNK
     Route: 048
     Dates: start: 20090918, end: 20090925
  36. AUGMENTIN '125' [Concomitant]
     Dosage: UNK
     Route: 048
     Dates: start: 20090929, end: 20091011

REACTIONS (4)
  - ATRIAL FIBRILLATION [None]
  - DIABETES MELLITUS [None]
  - RENAL FAILURE ACUTE [None]
  - VASCULITIS [None]
